FAERS Safety Report 7152505-0 (Version None)
Quarter: 2010Q4

REPORT INFORMATION
  Report Type: 
  Country: None (occurrence: None)
  Receive Date: 20101213
  Receipt Date: 20101208
  Transmission Date: 20110411
  Serious: Yes (Other)
  Sender: FDA-Public Use
  Company Number: US-PFIZER INC-2004231546US

PATIENT
  Sex: Female
  Weight: 73 kg

DRUGS (6)
  1. PROVERA [Suspect]
     Indication: HORMONE REPLACEMENT THERAPY
     Dosage: 2.5-10 MG
     Route: 048
     Dates: start: 19930101, end: 19970101
  2. PREMPRO [Suspect]
     Dosage: 0.625/5MG
     Route: 065
     Dates: start: 19970101, end: 19980101
  3. PREMARIN [Suspect]
     Dosage: 0.625 MG, UNK
     Route: 065
     Dates: start: 19930101, end: 19980401
  4. PREMARIN [Suspect]
     Dosage: 0.625 MG, UNK
     Route: 065
     Dates: start: 19980201, end: 19980401
  5. MEDROXYPROGESTERONE ACETATE [Suspect]
     Indication: HORMONE REPLACEMENT THERAPY
     Dosage: 10 MG, UNK
     Route: 065
     Dates: start: 19980301, end: 19980401
  6. CYCRIN [Suspect]
     Indication: HORMONE REPLACEMENT THERAPY
     Dosage: 10 MG, UNK
     Route: 065
     Dates: start: 19980201, end: 19980401

REACTIONS (3)
  - BREAST CANCER FEMALE [None]
  - OVARIAN CANCER [None]
  - THROMBOSIS [None]
